FAERS Safety Report 13602925 (Version 1)
Quarter: 2017Q2

REPORT INFORMATION
  Report Type: Spontaneous
  Country: HR (occurrence: HR)
  Receive Date: 20170601
  Receipt Date: 20170601
  Transmission Date: 20170830
  Serious: Yes (Other)
  Sender: FDA-Public Use
  Company Number: PHHY2017HR079424

PATIENT
  Age: 62 Year
  Sex: Female
  Weight: 70 kg

DRUGS (3)
  1. PRITORPLUS [Concomitant]
     Active Substance: HYDROCHLOROTHIAZIDE\TELMISARTAN
     Indication: HYPERTENSION
     Dosage: 1 DF, 1 IN 1 D
     Route: 065
     Dates: start: 20100202
  2. DEXAMETHASON KRKA [Suspect]
     Active Substance: DEXAMETHASONE
     Indication: SCIATICA
     Dosage: 1 DF, 1 IN 1 D (AMPOULES)
     Route: 065
     Dates: start: 20131102, end: 20131105
  3. VOLTAREN [Suspect]
     Active Substance: DICLOFENAC SODIUM
     Indication: SCIATICA
     Dosage: 1 DF, 1 IN 1 D (AMPOULES)
     Route: 065
     Dates: start: 20131102, end: 20131105

REACTIONS (3)
  - Choking [Recovered/Resolved]
  - Chest discomfort [Recovered/Resolved]
  - Blister [Recovered/Resolved]

NARRATIVE: CASE EVENT DATE: 20131102
